FAERS Safety Report 5265235-7 (Version None)
Quarter: 2007Q1

REPORT INFORMATION
  Report Type: 
  Country: None (occurrence: None)
  Receive Date: 20061213
  Receipt Date: 20040622
  Transmission Date: 20070707
  Serious: Yes (Other)
  Sender: FDA-Public Use
  Company Number: 2004UW11626

PATIENT
  Age: 60 Year
  Sex: Female
  Weight: 77.5651 kg

DRUGS (9)
  1. IRESSA [Suspect]
     Indication: NON-SMALL CELL LUNG CANCER
     Dosage: 250 MG PO
     Route: 048
     Dates: start: 20040528
  2. ALDACTONE [Concomitant]
  3. LASIX [Concomitant]
     Indication: ADENOCARCINOMA
  4. POTASSIUM ACETATE [Concomitant]
  5. DECADRON [Concomitant]
  6. ATIVAN [Concomitant]
  7. MS CONTIN [Concomitant]
  8. ALBUTEROL [Concomitant]
  9. GUAIFENESIN [Concomitant]

REACTIONS (1)
  - HEPATIC ENZYME INCREASED [None]
